FAERS Safety Report 11134656 (Version 1)
Quarter: 2015Q2

REPORT INFORMATION
  Report Type: Report from Study
  Country: US (occurrence: US)
  Receive Date: 20150525
  Receipt Date: 20150525
  Transmission Date: 20150821
  Serious: Yes (Other)
  Sender: FDA-Public Use
  Company Number: US-ROCHE-1581349

PATIENT
  Age: 54 Year
  Sex: Female

DRUGS (2)
  1. VELIPARIB [Suspect]
     Active Substance: VELIPARIB
     Indication: RECTAL CANCER
     Route: 048
     Dates: start: 20130722, end: 20130830
  2. CAPECITABINE. [Suspect]
     Active Substance: CAPECITABINE
     Indication: RECTAL CANCER
     Dosage: 825 MG/KG
     Route: 048
     Dates: start: 20130722, end: 20130830

REACTIONS (1)
  - Vaginal fistula [Unknown]

NARRATIVE: CASE EVENT DATE: 20150417
